FAERS Safety Report 19727875 (Version 5)
Quarter: 2022Q1

REPORT INFORMATION
  Report Type: Report from Study
  Country: US (occurrence: US)
  Receive Date: 20210820
  Receipt Date: 20220323
  Transmission Date: 20220423
  Serious: Yes (Hospitalization, Other)
  Sender: FDA-Public Use
  Company Number: NVSC2021US185658

PATIENT
  Age: 58 Year
  Sex: Female

DRUGS (1)
  1. ENTRESTO [Suspect]
     Active Substance: SACUBITRIL\VALSARTAN
     Indication: Cardiac failure chronic
     Dosage: UNK, BID
     Route: 048

REACTIONS (23)
  - Loss of consciousness [Unknown]
  - Metabolic acidosis [Unknown]
  - Dehydration [Unknown]
  - Hypotension [Unknown]
  - Full blood count decreased [Unknown]
  - Fall [Unknown]
  - Acute kidney injury [Unknown]
  - Lupus-like syndrome [Unknown]
  - Hyperhidrosis [Unknown]
  - Vomiting [Not Recovered/Not Resolved]
  - Platelet count decreased [Unknown]
  - Cholelithiasis [Unknown]
  - Depression [Unknown]
  - Somnolence [Unknown]
  - Feeling abnormal [Unknown]
  - Illness [Unknown]
  - Limb discomfort [Unknown]
  - Weight decreased [Unknown]
  - Malnutrition [Unknown]
  - Stress [Unknown]
  - Dysphonia [Unknown]
  - Nausea [Not Recovered/Not Resolved]
  - Abdominal distension [Unknown]

NARRATIVE: CASE EVENT DATE: 20220216
